FAERS Safety Report 8150441-4 (Version None)
Quarter: 2012Q1

REPORT INFORMATION
  Report Type: 
  Country: None (occurrence: None)
  Receive Date: 20120220
  Receipt Date: 20120215
  Transmission Date: 20120608
  Serious: Yes (Hospitalization)
  Sender: FDA-Public Use
  Company Number: FR-PFIZER INC-2012040275

PATIENT
  Age: 81 Year
  Sex: Female

DRUGS (3)
  1. METHOTREXATE [Suspect]
     Indication: RHEUMATOID ARTHRITIS
     Dosage: 12.5 MG, 1X/DAY
     Route: 048
     Dates: start: 20111111
  2. METHOTREXATE [Suspect]
     Dosage: 2.5 MG, 1X/DAY
     Dates: end: 20111119
  3. PANTOPRAZOLE [Suspect]
     Dosage: UNK
     Dates: start: 20111117, end: 20111122

REACTIONS (4)
  - TOXICITY TO VARIOUS AGENTS [None]
  - INAPPROPRIATE SCHEDULE OF DRUG ADMINISTRATION [None]
  - PANCYTOPENIA [None]
  - DRUG INTERACTION [None]
